FAERS Safety Report 10144496 (Version 1)
Quarter: 2014Q2

REPORT INFORMATION
  Report Type: Spontaneous
  Country: US (occurrence: US)
  Receive Date: 20140430
  Receipt Date: 20140430
  Transmission Date: 20141212
  Serious: No
  Sender: FDA-Public Use
  Company Number: US-GILEAD-2014-0100903

PATIENT
  Age: 64 Year
  Sex: Male

DRUGS (4)
  1. SOVALDI [Suspect]
     Indication: PRODUCT USED FOR UNKNOWN INDICATION
     Dosage: 400 MG, BID (TOOK AT 8AM AND 8PM)
     Route: 065
     Dates: start: 20140423, end: 20140423
  2. SOVALDI [Suspect]
     Dosage: 400 MG, QD
     Route: 065
     Dates: start: 20140416
  3. RIBAVIRIN [Concomitant]
     Dosage: 600 MG, BID
  4. INTERFERON [Concomitant]
     Dosage: UNK, Q1WK

REACTIONS (1)
  - Accidental overdose [Recovered/Resolved]
